FAERS Safety Report 10648864 (Version 2)
Quarter: 2014Q4

REPORT INFORMATION
  Report Type: Spontaneous
  Country: US (occurrence: US)
  Receive Date: 20141212
  Receipt Date: 20141212
  Transmission Date: 20150529
  Serious: No
  Sender: FDA-Public Use
  Company Number: US-SHIRE-US201400842

PATIENT
  Sex: Female

DRUGS (4)
  1. VPRIV [Suspect]
     Active Substance: VELAGLUCERASE ALFA
     Indication: GAUCHER^S DISEASE
     Dosage: 45 UNITS/KG, (BIWEEKLY)
     Route: 041
     Dates: start: 20111001, end: 20120301
  2. VPRIV [Suspect]
     Active Substance: VELAGLUCERASE ALFA
     Dosage: 45 UNITS/KG, (BIWEEKLY)
     Route: 041
     Dates: start: 20120506, end: 20120821
  3. VPRIV [Suspect]
     Active Substance: VELAGLUCERASE ALFA
     Dosage: 45 UNITS/KG, (BIWEEKLY)
     Route: 041
     Dates: start: 20120821, end: 20121024
  4. VPRIV [Suspect]
     Active Substance: VELAGLUCERASE ALFA
     Dosage: 45 UNITS/KG, (BIWEEKLY)
     Route: 041
     Dates: start: 20121024

REACTIONS (1)
  - Exposure during pregnancy [Recovered/Resolved]
